FAERS Safety Report 4897764-X (Version None)
Quarter: 2006Q1

REPORT INFORMATION
  Report Type: 
  Country: None (occurrence: None)
  Receive Date: 20060130
  Receipt Date: 20060117
  Transmission Date: 20060701
  Serious: Yes (Other)
  Sender: FDA-Public Use
  Company Number: HQWYE393418JAN06

PATIENT
  Sex: Female

DRUGS (2)
  1. EFFEXOR XR [Suspect]
     Dosage: 1 CAPSULE 1X PER 1 DAY, ORAL
     Route: 048
     Dates: start: 20060116
  2. TYLENOL W/ CODEINE NO. 3 [Suspect]

REACTIONS (3)
  - DRUG ABUSER [None]
  - ROAD TRAFFIC ACCIDENT [None]
  - SOMNOLENCE [None]
